FAERS Safety Report 19799627 (Version 1)
Quarter: 2021Q3

REPORT INFORMATION
  Report Type: Spontaneous
  Country: None (occurrence: US)
  Receive Date: 20210907
  Receipt Date: 20210907
  Transmission Date: 20211014
  Serious: Yes (Other)
  Sender: FDA-Public Use
  Company Number: US-JUBILANT PHARMA LTD-2021US000725

PATIENT
  Sex: Male

DRUGS (11)
  1. SODIUM PYROPHOSPHATE. [Suspect]
     Active Substance: SODIUM PYROPHOSPHATE
     Indication: RADIOISOTOPE SCAN
     Dosage: UNK, UNK
     Route: 042
  2. SEEBRI BREEZHALER [Concomitant]
     Active Substance: GLYCOPYRROLATE
     Indication: PRODUCT USED FOR UNKNOWN INDICATION
     Dosage: UNK, UNK
  3. OXYGEN. [Concomitant]
     Active Substance: OXYGEN
     Indication: PRODUCT USED FOR UNKNOWN INDICATION
     Dosage: UNK, UNK
  4. POTASSIUM CHLORIDE, ETHYLCELLULOSE MICROENCAPSULATED [Concomitant]
     Indication: PRODUCT USED FOR UNKNOWN INDICATION
     Dosage: UNK, UNK
  5. SPIRONOLACTONE. [Concomitant]
     Active Substance: SPIRONOLACTONE
     Indication: PRODUCT USED FOR UNKNOWN INDICATION
     Dosage: UNK, UNK
  6. DIMERCAPTOSUCCINIC ACID [Suspect]
     Active Substance: 2,3-DIMERCAPTOSUCCINIC ACID
     Indication: RADIOISOTOPE SCAN
     Dosage: 203.432 MBQ, SINGLE DOSE
     Route: 042
  7. PANTOPRAZOLE SODIUM SESQUIHYDRATE [Concomitant]
     Active Substance: PANTOPRAZOLE SODIUM
     Indication: PRODUCT USED FOR UNKNOWN INDICATION
     Dosage: UNK, UNK
  8. DIETHYLENETRIAMINEPENTAACETIC ACID [Suspect]
     Active Substance: PENTETIC ACID
     Indication: RADIOISOTOPE SCAN
     Dosage: 203.432 MBQ, SINGLE DOSE
     Route: 042
  9. TINZAPARIN SODIUM [Concomitant]
     Active Substance: TINZAPARIN SODIUM
     Indication: PRODUCT USED FOR UNKNOWN INDICATION
     Dosage: UNK, UNK
  10. BUDESONIDE W/FORMOTEROL FUMARATE [Concomitant]
     Active Substance: BUDESONIDE\FORMOTEROL FUMARATE
     Indication: PRODUCT USED FOR UNKNOWN INDICATION
     Dosage: UNK, UNK
  11. FUROSEMIDE. [Concomitant]
     Active Substance: FUROSEMIDE
     Indication: PRODUCT USED FOR UNKNOWN INDICATION
     Dosage: UNK, UNK

REACTIONS (3)
  - Injection site oedema [Recovering/Resolving]
  - Injection site pain [Recovered/Resolved]
  - Injection site extravasation [Recovered/Resolved]
